FAERS Safety Report 13430057 (Version 1)
Quarter: 2017Q2

REPORT INFORMATION
  Report Type: Spontaneous
  Country: US (occurrence: US)
  Receive Date: 20170411
  Receipt Date: 20170411
  Transmission Date: 20170830
  Serious: No
  Sender: FDA-Public Use
  Company Number: None

PATIENT
  Age: 58 Year
  Sex: Female

DRUGS (2)
  1. XIAFLEX [Suspect]
     Active Substance: COLLAGENASE CLOSTRIDIUM HISTOLYTICUM
     Indication: DUPUYTREN^S CONTRACTURE
     Dosage: 0.58MG LEFT SMALL FINGER INJECT @ MDO
     Dates: start: 20160329, end: 20160329
  2. CALCIUM CARB [Concomitant]

REACTIONS (1)
  - Contusion [None]

NARRATIVE: CASE EVENT DATE: 20160329
